FAERS Safety Report 15383583 (Version 1)
Quarter: 2018Q3

REPORT INFORMATION
  Report Type: Spontaneous
  Country: ES (occurrence: ES)
  Receive Date: 20180913
  Receipt Date: 20180913
  Transmission Date: 20181010
  Serious: Yes (Hospitalization, Other)
  Sender: FDA-Public Use
  Company Number: ES-BAYER-2018-166069

PATIENT
  Age: 82 Year
  Sex: Male

DRUGS (4)
  1. XOFIGO [Suspect]
     Active Substance: RADIUM RA-223 DICHLORIDE
     Indication: HORMONE-REFRACTORY PROSTATE CANCER
     Dosage: UNK
     Dates: start: 201605
  2. ABIRATERONE ACETATE. [Concomitant]
     Active Substance: ABIRATERONE ACETATE
  3. CALCIUM VIT D [Concomitant]
     Active Substance: CALCIUM\CHOLECALCIFEROL
  4. ENZALUTAMIDE [Concomitant]
     Active Substance: ENZALUTAMIDE

REACTIONS (11)
  - Bone marrow toxicity [None]
  - Prostatic specific antigen increased [None]
  - Anaemia [None]
  - Diarrhoea [None]
  - Metastases to bone [None]
  - Bone pain [None]
  - Asthenia [None]
  - Anaemia [None]
  - Blood alkaline phosphatase increased [None]
  - Bone pain [None]
  - General physical health deterioration [None]

NARRATIVE: CASE EVENT DATE: 201605
